FAERS Safety Report 9880353 (Version 1)
Quarter: 2014Q1

REPORT INFORMATION
  Report Type: Spontaneous
  Country: US (occurrence: None)
  Receive Date: 20140204
  Receipt Date: 20140204
  Transmission Date: 20141002
  Serious: Yes (Death)
  Sender: FDA-Public Use
  Company Number: ABR_01462_2014

PATIENT
  Age: 27 Year
  Sex: Female

DRUGS (3)
  1. AMPHETAMINE [Suspect]
     Indication: PRODUCT USED FOR UNKNOWN INDICATION
     Route: 048
  2. SELECTIVE SEROTONIN REUPTAKE INHIBITORS [Suspect]
     Indication: PRODUCT USED FOR UNKNOWN INDICATION
     Route: 048
  3. BENZODIAZEPINE DERIVATIVES [Suspect]
     Indication: PRODUCT USED FOR UNKNOWN INDICATION
     Route: 048

REACTIONS (6)
  - Poisoning [None]
  - Respiratory arrest [None]
  - Cardiac arrest [None]
  - Drug abuse [None]
  - Cardio-respiratory arrest [None]
  - Toxicity to various agents [None]
